FAERS Safety Report 9511801 (Version 1)
Quarter: 2013Q3

REPORT INFORMATION
  Report Type: Spontaneous
  Country: US (occurrence: None)
  Receive Date: 20130909
  Receipt Date: 20130909
  Transmission Date: 20140515
  Serious: No
  Sender: FDA-Public Use
  Company Number: None

PATIENT
  Age: 42 Year
  Sex: Female
  Weight: 79.38 kg

DRUGS (3)
  1. METHYLPHENIDATE 36 MG MALLINCKRO [Suspect]
     Indication: ATTENTION DEFICIT/HYPERACTIVITY DISORDER
     Dosage: 1 TABLET ONCE DAILY TAKEN BY MOUTH
     Route: 048
     Dates: start: 20130805, end: 20130906
  2. METHYLPHENIDATE 36 MG MALLINCKRO [Suspect]
     Indication: PSYCHOMOTOR HYPERACTIVITY
     Dosage: 1 TABLET ONCE DAILY TAKEN BY MOUTH
     Route: 048
     Dates: start: 20130805, end: 20130906
  3. METHYLPHENIDATE 36 MG MALLINCKRO [Suspect]
     Indication: OBSESSIVE-COMPULSIVE DISORDER
     Dosage: 1 TABLET ONCE DAILY TAKEN BY MOUTH
     Route: 048
     Dates: start: 20130805, end: 20130906

REACTIONS (3)
  - Product shape issue [None]
  - Drug ineffective [None]
  - Product quality issue [None]
